FAERS Safety Report 8350786-9 (Version None)
Quarter: 2012Q2

REPORT INFORMATION
  Report Type: 
  Country: None (occurrence: None)
  Receive Date: 20120510
  Receipt Date: 20120507
  Transmission Date: 20120825
  Serious: Yes (Death)
  Sender: FDA-Public Use
  Company Number: FR-GLAXOSMITHKLINE-B0800437A

PATIENT
  Sex: Male
  Weight: 72 kg

DRUGS (4)
  1. ACETAMINOPHEN AND TRAMADOL HCL [Concomitant]
     Indication: PAIN
     Dosage: 1TAB PER DAY
     Route: 048
     Dates: start: 20110215
  2. PREDNISOLONE [Concomitant]
     Indication: ADRENOCORTICAL STEROID THERAPY
     Dosage: 20MG PER DAY
     Route: 048
     Dates: start: 20120301
  3. CELEBREX [Concomitant]
     Indication: PAIN
     Dosage: 1TAB PER DAY
     Route: 048
     Dates: start: 20120301
  4. PAZOPANIB [Suspect]
     Indication: GASTROINTESTINAL CANCER METASTATIC
     Dosage: 800MG PER DAY
     Route: 048
     Dates: start: 20120424

REACTIONS (1)
  - CARDIO-RESPIRATORY ARREST [None]
